FAERS Safety Report 21639143 (Version 1)
Quarter: 2022Q4

REPORT INFORMATION
  Report Type: Report from Study
  Country: BR (occurrence: BR)
  Receive Date: 20221124
  Receipt Date: 20221124
  Transmission Date: 20230113
  Serious: Yes (Hospitalization, Other)
  Sender: FDA-Public Use
  Company Number: BR-TAKEDA-2022TUS088362

PATIENT
  Age: 45 Year
  Sex: Female

DRUGS (2)
  1. VEDOLIZUMAB [Suspect]
     Active Substance: VEDOLIZUMAB
     Indication: Crohn^s disease
     Dosage: 300 MILLIGRAM
     Route: 042
     Dates: start: 2019
  2. PROSSO [Concomitant]
     Indication: Osteoporosis
     Dosage: UNK

REACTIONS (6)
  - Femur fracture [Recovering/Resolving]
  - Fistula [Unknown]
  - Skin discolouration [Unknown]
  - Blood albumin decreased [Recovering/Resolving]
  - Thrombophlebitis [Recovering/Resolving]
  - Fall [Recovering/Resolving]

NARRATIVE: CASE EVENT DATE: 20190501
